FAERS Safety Report 10061242 (Version 2)
Quarter: 2014Q2

REPORT INFORMATION
  Report Type: Spontaneous
  Country: US (occurrence: US)
  Receive Date: 20140407
  Receipt Date: 20140428
  Transmission Date: 20141212
  Serious: Yes (Death, Hospitalization)
  Sender: FDA-Public Use
  Company Number: US-ROCHE-1378519

PATIENT
  Age: 74 Year
  Sex: Female
  Weight: 64.92 kg

DRUGS (1)
  1. XELODA [Suspect]
     Indication: COLON CANCER
     Route: 048
     Dates: start: 20140122

REACTIONS (3)
  - Death [Fatal]
  - Haematemesis [Unknown]
  - Liver disorder [Unknown]
